FAERS Safety Report 8977996 (Version 2)
Quarter: 2013Q1

REPORT INFORMATION
  Report Type: Spontaneous
  Country: FR (occurrence: FR)
  Receive Date: 20121219
  Receipt Date: 20130123
  Transmission Date: 20140127
  Serious: Yes (Other)
  Sender: FDA-Public Use
  Company Number: FR-PFIZER INC-2012321366

PATIENT
  Sex: Female
  Weight: 2.16 kg

DRUGS (2)
  1. EFFEXOR LP [Suspect]
     Dosage: 37.5 MG, 1X/DAY
     Route: 048
     Dates: start: 20111229, end: 20120823
  2. ZYPREXA [Suspect]
     Dosage: 10 MG, 1X/DAY
     Route: 048
     Dates: start: 20111229, end: 20120823

REACTIONS (1)
  - Pre-eclampsia [Unknown]
